FAERS Safety Report 22323390 (Version 1)
Quarter: 2023Q2

REPORT INFORMATION
  Report Type: Spontaneous
  Country: US (occurrence: US)
  Receive Date: 20230516
  Receipt Date: 20230516
  Transmission Date: 20230721
  Serious: Yes (Hospitalization)
  Sender: FDA-Public Use
  Company Number: US-GLAXOSMITHKLINE-US2023067383

PATIENT

DRUGS (6)
  1. TRELEGY ELLIPTA [Suspect]
     Active Substance: FLUTICASONE FUROATE\UMECLIDINIUM BROMIDE\VILANTEROL TRIFENATATE
     Indication: Chronic obstructive pulmonary disease
     Dosage: 1 PUFF(S), QD 100-62.5-25MCG
     Route: 055
     Dates: start: 20230404
  2. FUROSEMIDE [Concomitant]
     Active Substance: FUROSEMIDE
     Indication: Oedema
     Dosage: 20 MG, QD
     Dates: start: 202209
  3. POTASSIUM [Concomitant]
     Active Substance: POTASSIUM
     Indication: Oedema
     Dosage: 20 MEQ, BID
     Dates: start: 202209
  4. XANAX [Concomitant]
     Active Substance: ALPRAZOLAM
     Indication: Anxiety
     Dosage: 0.05 MG, QD AS NEEDED
     Dates: start: 1993
  5. TRAMADOL [Concomitant]
     Active Substance: TRAMADOL
     Indication: Pain
     Dosage: 50 MG EVERY 4 HRS AS NEEDED
     Dates: start: 20230404
  6. PREDNISONE [Concomitant]
     Active Substance: PREDNISONE
     Indication: Dyspnoea
     Dosage: 5 MG DOSE PACK OVER 7 DAYS
     Dates: start: 20230505

REACTIONS (2)
  - Asthenia [Unknown]
  - Dyspnoea [Unknown]
